FAERS Safety Report 23231292 (Version 1)
Quarter: 2023Q4

REPORT INFORMATION
  Report Type: Spontaneous
  Country: BR (occurrence: BR)
  Receive Date: 20231127
  Receipt Date: 20231127
  Transmission Date: 20240109
  Serious: Yes (Other)
  Sender: FDA-Public Use
  Company Number: BR-WW-2023-BR-147905

PATIENT
  Age: 95 Year
  Sex: Male

DRUGS (1)
  1. DUTASTERIDE [Suspect]
     Active Substance: DUTASTERIDE
     Dosage: 0.5 MG
     Route: 065

REACTIONS (3)
  - Choking [Unknown]
  - Foreign body in throat [Unknown]
  - Dysphagia [Unknown]
